FAERS Safety Report 6302214-2 (Version None)
Quarter: 2009Q3

REPORT INFORMATION
  Report Type: 
  Country: None (occurrence: None)
  Receive Date: 20090810
  Receipt Date: 20090729
  Transmission Date: 20100115
  Serious: Yes (Hospitalization)
  Sender: FDA-Public Use
  Company Number: US-BIOGENIDEC-2008BI023667

PATIENT
  Age: 60 Year
  Sex: Male

DRUGS (1)
  1. AVONEX [Suspect]
     Indication: MULTIPLE SCLEROSIS
     Route: 030
     Dates: start: 20070630

REACTIONS (5)
  - ANAEMIA [None]
  - CYSTITIS [None]
  - IRON METABOLISM DISORDER [None]
  - PARALYSIS [None]
  - RENAL FAILURE [None]
